FAERS Safety Report 4654436-4 (Version None)
Quarter: 2005Q2

REPORT INFORMATION
  Report Type: 
  Country: None (occurrence: None)
  Receive Date: 20050503
  Receipt Date: 20050503
  Transmission Date: 20051028
  Serious: Yes (Other)
  Sender: FDA-Public Use
  Company Number: None

PATIENT
  Age: 34 Year
  Sex: Female

DRUGS (2)
  1. FENTANYL [Suspect]
     Indication: RADICULOPATHY
     Dosage: 25 MCG Q 72 HOURS
     Dates: start: 20050421, end: 20050429
  2. FENTANYL [Suspect]
     Indication: SPINAL FUSION SURGERY
     Dosage: 25 MCG Q 72 HOURS
     Dates: start: 20050421, end: 20050429

REACTIONS (6)
  - DYSPNOEA [None]
  - HEADACHE [None]
  - NAUSEA [None]
  - OEDEMA PERIPHERAL [None]
  - PITTING OEDEMA [None]
  - VOMITING [None]
